FAERS Safety Report 9801894 (Version 1)
Quarter: 2014Q1

REPORT INFORMATION
  Report Type: Spontaneous
  Country: US (occurrence: US)
  Receive Date: 20140107
  Receipt Date: 20140107
  Transmission Date: 20141002
  Serious: Yes (Life-Threatening)
  Sender: FDA-Public Use
  Company Number: US-ALLERGAN-1314827US

PATIENT
  Age: 14 Year
  Sex: Female

DRUGS (3)
  1. ACZONE [Suspect]
     Indication: ACNE
     Dosage: APPLY A SMALL AMOUNT ONCE DAILY
     Dates: start: 20130603, end: 20130828
  2. HYDROCORTISONE [Concomitant]
     Indication: ECZEMA
     Dosage: 1 DF, BID
     Dates: start: 20130603
  3. TRETIN X [Concomitant]
     Indication: ACNE
     Dosage: UNK
     Dates: start: 20130603

REACTIONS (1)
  - Suicide attempt [Unknown]
